FAERS Safety Report 25425614 (Version 1)
Quarter: 2025Q2

REPORT INFORMATION
  Report Type: Spontaneous
  Country: CN (occurrence: CN)
  Receive Date: 20250611
  Receipt Date: 20250611
  Transmission Date: 20250716
  Serious: Yes (Other)
  Sender: JOHNSON AND JOHNSON
  Company Number: CN-BAYER-2025A076808

PATIENT
  Age: 84 Year
  Sex: Female
  Weight: 45 kg

DRUGS (2)
  1. XARELTO [Suspect]
     Active Substance: RIVAROXABAN
     Indication: Thrombosis prophylaxis
     Dosage: 10 MG, QD
     Route: 048
     Dates: start: 20250527, end: 20250602
  2. XARELTO [Suspect]
     Active Substance: RIVAROXABAN
     Indication: Atrial fibrillation

REACTIONS (4)
  - Haematuria [Recovered/Resolved]
  - Coagulopathy [Recovering/Resolving]
  - Prescribed underdose [Unknown]
  - Underdose [Unknown]

NARRATIVE: CASE EVENT DATE: 20250602
